FAERS Safety Report 20869602 (Version 1)
Quarter: 2022Q2

REPORT INFORMATION
  Report Type: Spontaneous
  Country: US (occurrence: None)
  Receive Date: 20220525
  Receipt Date: 20220525
  Transmission Date: 20220721
  Serious: No
  Sender: FDA-Public Use
  Company Number: 2022A184769

PATIENT
  Sex: Female

DRUGS (1)
  1. SYMBICORT [Suspect]
     Active Substance: BUDESONIDE\FORMOTEROL FUMARATE DIHYDRATE
     Indication: Asthma
     Dosage: 160/4.5 2 PUFFS TWICE EACH DAY
     Route: 055

REACTIONS (4)
  - Osteoporosis [Unknown]
  - Sinusitis [Unknown]
  - Mucosal inflammation [Unknown]
  - Eosinophil count increased [Unknown]
